FAERS Safety Report 9614629 (Version 1)
Quarter: 2013Q4

REPORT INFORMATION
  Report Type: Spontaneous
  Country: US (occurrence: None)
  Receive Date: 20131009
  Receipt Date: 20131009
  Transmission Date: 20140711
  Serious: Yes (Hospitalization)
  Sender: FDA-Public Use
  Company Number: None

PATIENT
  Age: 21 Year
  Sex: Male
  Weight: 79.5 kg

DRUGS (2)
  1. LITHIUM CARBONATE [Suspect]
     Indication: MANIA
     Route: 048
     Dates: start: 20121221, end: 20130129
  2. LITHIUM CARBONATE ER [Suspect]
     Route: 048

REACTIONS (2)
  - Hypernatraemia [None]
  - Diabetes insipidus [None]
